FAERS Safety Report 21451485 (Version 1)
Quarter: 2022Q4

REPORT INFORMATION
  Report Type: Report from Study
  Country: US (occurrence: US)
  Receive Date: 20221013
  Receipt Date: 20221013
  Transmission Date: 20230113
  Serious: Yes (Other)
  Sender: FDA-Public Use
  Company Number: US-BAYER-2022A138711

PATIENT
  Age: 69 Year
  Sex: Female

DRUGS (1)
  1. ADEMPAS [Suspect]
     Active Substance: RIOCIGUAT
     Indication: Pulmonary arterial hypertension
     Dosage: 0.5 MG, TID
     Route: 048
     Dates: start: 20220916

REACTIONS (9)
  - Hypotension [None]
  - Syncope [None]
  - Headache [None]
  - Dizziness [None]
  - Arthralgia [None]
  - Dizziness [None]
  - Pain in extremity [None]
  - Palpitations [None]
  - Chills [None]

NARRATIVE: CASE EVENT DATE: 20221005
